FAERS Safety Report 23185165 (Version 2)
Quarter: 2023Q4

REPORT INFORMATION
  Report Type: Spontaneous
  Country: DE (occurrence: DE)
  Receive Date: 20231115
  Receipt Date: 20231202
  Transmission Date: 20240110
  Serious: Yes (Other)
  Sender: FDA-Public Use
  Company Number: DE-DCGMA-14164987

PATIENT
  Sex: Female
  Weight: 79 kg

DRUGS (3)
  1. ENALAPRIL [Suspect]
     Active Substance: ENALAPRIL
     Indication: Hypertension
     Dosage: 10 MILLIGRAM, ONCE A DAY (EVERY DAYS)
     Route: 065
     Dates: start: 20131001
  2. CANDESARTAN CILEXETIL\HYDROCHLOROTHIAZIDE [Concomitant]
     Active Substance: CANDESARTAN CILEXETIL\HYDROCHLOROTHIAZIDE
     Indication: Hypertension
     Dosage: 0.5 DOSAGE FORM, ONCE A DAY (FORM EVERY DAYS)
     Route: 065
     Dates: start: 20141028, end: 20141112
  3. METOPROLOL [Concomitant]
     Active Substance: METOPROLOL
     Indication: Hypertension
     Dosage: 0.5 DOSAGE FORM, ONCE A DAY (FORM EVERY DAYS)
     Route: 065
     Dates: start: 20131001

REACTIONS (5)
  - Anaemia [Unknown]
  - Arthralgia [Unknown]
  - Myalgia [Unknown]
  - Thrombocytopenia [Unknown]
  - Tendon disorder [Unknown]
